FAERS Safety Report 4674486-1 (Version None)
Quarter: 2005Q2

REPORT INFORMATION
  Report Type: 
  Country: None (occurrence: None)
  Receive Date: 20050524
  Receipt Date: 20050408
  Transmission Date: 20051028
  Serious: No
  Sender: FDA-Public Use
  Company Number: USA050291406

PATIENT
  Age: 34 Year
  Sex: Male

DRUGS (2)
  1. STRATTERA [Suspect]
     Indication: ATTENTION DEFICIT/HYPERACTIVITY DISORDER
     Dosage: 60 MG
     Dates: start: 20040825
  2. HYDROCHLOROTHIAZIDE W/VALSARTAN [Concomitant]

REACTIONS (2)
  - ALANINE AMINOTRANSFERASE INCREASED [None]
  - VOMITING [None]
